FAERS Safety Report 4519705-7 (Version None)
Quarter: 2004Q4

REPORT INFORMATION
  Report Type: 
  Country: None (occurrence: None)
  Receive Date: 20041206
  Receipt Date: 20041123
  Transmission Date: 20050328
  Serious: Yes (Hospitalization)
  Sender: FDA-Public Use
  Company Number: PHEH2004US12658

PATIENT
  Sex: Female

DRUGS (3)
  1. ACIPHEX [Concomitant]
     Dosage: 20 MG, QD
  2. DIOVAN HCT [Suspect]
     Dosage: 80/12.5 MG DAILY
     Dates: start: 20030101, end: 20040401
  3. DIOVAN HCT [Suspect]
     Dosage: 1 DF, QD
     Dates: start: 20040401

REACTIONS (5)
  - ABDOMINAL PAIN UPPER [None]
  - BACK PAIN [None]
  - FLATULENCE [None]
  - GALLBLADDER DISORDER [None]
  - GASTROENTERITIS VIRAL [None]
